FAERS Safety Report 22173960 (Version 1)
Quarter: 2023Q2

REPORT INFORMATION
  Report Type: Spontaneous
  Country: RU (occurrence: RU)
  Receive Date: 20230404
  Receipt Date: 20230404
  Transmission Date: 20230722
  Serious: Yes (Other)
  Sender: FDA-Public Use
  Company Number: RU-ABBOTT-2023A-1361718

PATIENT
  Age: 19 Year
  Sex: Female
  Weight: 42 kg

DRUGS (11)
  1. PANCREATIN [Suspect]
     Active Substance: PANCRELIPASE
     Indication: Cystic fibrosis
     Dosage: UNIT DOSE: 10000 IU
     Route: 048
     Dates: start: 20230101, end: 20230130
  2. ACETYLCYSTEINE [Concomitant]
     Active Substance: ACETYLCYSTEINE
     Indication: Cystic fibrosis
     Dosage: UNIT DOSE: 600MG
     Route: 048
  3. CHOLECALCIFEROL [Concomitant]
     Active Substance: CHOLECALCIFEROL
     Indication: Cystic fibrosis
     Dosage: UNIT DOSE: 2000IU
  4. AZITHROMYCIN [Concomitant]
     Active Substance: AZITHROMYCIN
     Indication: Cystic fibrosis
     Dosage: UNIT DOSE: 250MG
     Route: 048
     Dates: start: 20220825, end: 20230124
  5. ELEXACAFTOR\IVACAFTOR\TEZACAFTOR [Concomitant]
     Active Substance: ELEXACAFTOR\IVACAFTOR\TEZACAFTOR
     Indication: Cystic fibrosis
     Dosage: UNIT DOSE: 2 TABLET
  6. COTRIMOXAZOLE [Concomitant]
     Active Substance: SULFAMETHOXAZOLE\TRIMETHOPRIM
     Indication: Cystic fibrosis
     Dosage: UNIT DOSE: 480MG
     Route: 048
     Dates: start: 20220902, end: 20221118
  7. PREDNISOLONE [Concomitant]
     Active Substance: PREDNISOLONE
     Indication: Cystic fibrosis
     Dosage: UNIT DOSE: 5MG
     Route: 048
  8. IVACAFTOR [Concomitant]
     Active Substance: IVACAFTOR
     Indication: Product used for unknown indication
     Dosage: UNIT DOSE: 150MG
     Route: 048
  9. ALBUTEROL [Concomitant]
     Active Substance: ALBUTEROL
     Indication: Cystic fibrosis
     Route: 055
  10. RESPISALF AIR [Concomitant]
     Indication: Cystic fibrosis
     Route: 055
  11. HYANEB [Concomitant]
     Indication: Cystic fibrosis
     Route: 055

REACTIONS (2)
  - Pain [Recovered/Resolved with Sequelae]
  - Frequent bowel movements [Recovered/Resolved with Sequelae]

NARRATIVE: CASE EVENT DATE: 20230109
